FAERS Safety Report 13117044 (Version 16)
Quarter: 2019Q2

REPORT INFORMATION
  Report Type: Spontaneous
  Country: US (occurrence: US)
  Receive Date: 20170116
  Receipt Date: 20190604
  Transmission Date: 20190711
  Serious: Yes (Hospitalization, Congenital Anomaly, Other)
  Sender: FDA-Public Use
  Company Number: PHEH2017US001589

PATIENT
  Sex: Female

DRUGS (6)
  1. ONDANSETRON HYDROCHLORIDE. [Suspect]
     Active Substance: ONDANSETRON HYDROCHLORIDE
     Indication: FOETAL EXPOSURE DURING PREGNANCY
     Route: 064
  2. ONDANSETRON [Suspect]
     Active Substance: ONDANSETRON
     Indication: FOETAL EXPOSURE DURING PREGNANCY
     Dosage: MOTHER DOSE: 4 MG, QD
     Route: 064
  3. ZOFRAN [Suspect]
     Active Substance: ONDANSETRON HYDROCHLORIDE
     Indication: FOETAL EXPOSURE DURING PREGNANCY
     Dosage: MOTHER DOSE: 4 MG PER 2 ML, Q6H
     Route: 064
  4. ONDANSETRON HYDROCHLORIDE. [Suspect]
     Active Substance: ONDANSETRON HYDROCHLORIDE
     Indication: FOETAL EXPOSURE DURING PREGNANCY
     Dosage: MOTHER DOSE: 2 DF, Q8H
     Route: 064
  5. ZOFRAN [Suspect]
     Active Substance: ONDANSETRON HYDROCHLORIDE
     Indication: FOETAL EXPOSURE DURING PREGNANCY
     Dosage: MOTHER DOSE: 2 DF, Q8H
     Route: 064
  6. ONDANSETRON. [Suspect]
     Active Substance: ONDANSETRON
     Indication: FOETAL EXPOSURE DURING PREGNANCY
     Dosage: MOTHER^S DOSE: 4 MG, TWICE DAILY (BID)
     Route: 064

REACTIONS (40)
  - Atelectasis [Unknown]
  - Supraventricular tachycardia [Unknown]
  - Feeding disorder [Unknown]
  - Congenital tricuspid valve stenosis [Unknown]
  - Laevocardia [Unknown]
  - Takayasu^s arteritis [Unknown]
  - Sepsis [Unknown]
  - Hypoplastic right heart syndrome [Unknown]
  - Transposition of the great vessels [Unknown]
  - Pyelocaliectasis [Unknown]
  - Pleural effusion [Unknown]
  - Foetal exposure during pregnancy [Unknown]
  - Pyrexia [Unknown]
  - Ventricular septal defect [Unknown]
  - Coarctation of the aorta [Unknown]
  - Tricuspid valve incompetence [Unknown]
  - Left-to-right cardiac shunt [Unknown]
  - Univentricular heart [Unknown]
  - Pulmonary congestion [Unknown]
  - Injury [Unknown]
  - Double outlet right ventricle [Unknown]
  - Mitral valve incompetence [Unknown]
  - Pulmonary hypertension [Unknown]
  - Cardiomyopathy [Unknown]
  - Anxiety [Unknown]
  - Wolff-Parkinson-White syndrome congenital [Unknown]
  - Left atrial enlargement [Unknown]
  - Pain [Unknown]
  - Stress [Unknown]
  - Tricuspid valve disease [Unknown]
  - Pulmonary artery stenosis congenital [Unknown]
  - Constipation [Unknown]
  - Congenital tricuspid valve atresia [Unknown]
  - Patent ductus arteriosus [Unknown]
  - Emotional distress [Unknown]
  - Cardiomegaly [Unknown]
  - Heart disease congenital [Unknown]
  - Ventricular hypoplasia [Unknown]
  - Pulmonary oedema neonatal [Unknown]
  - Tachycardia [Unknown]
